FAERS Safety Report 6197944-X (Version None)
Quarter: 2009Q2

REPORT INFORMATION
  Report Type: 
  Country: None (occurrence: None)
  Receive Date: 20090521
  Receipt Date: 20090512
  Transmission Date: 20091009
  Serious: Yes (Other)
  Sender: FDA-Public Use
  Company Number: B0546069A

PATIENT
  Sex: Male

DRUGS (6)
  1. ARIXTRA [Suspect]
     Indication: THROMBOSIS PROPHYLAXIS
     Dosage: 2.5MG PER DAY
     Route: 058
     Dates: start: 20081018, end: 20081019
  2. PENTCILLIN [Concomitant]
     Indication: POSTOPERATIVE CARE
     Dosage: 3G PER DAY
     Dates: start: 20081017, end: 20081019
  3. SOLDACTONE [Concomitant]
     Indication: POSTOPERATIVE CARE
     Dosage: 200MG PER DAY
     Route: 042
     Dates: start: 20081018, end: 20081019
  4. UNKNOWN [Concomitant]
     Indication: POSTOPERATIVE CARE
     Route: 042
     Dates: start: 20081018, end: 20081023
  5. UNKNOWN [Concomitant]
     Dosage: 4ML PER DAY
     Dates: start: 20081017, end: 20081024
  6. ANALGESIA [Concomitant]

REACTIONS (4)
  - ABDOMINAL WALL ABSCESS [None]
  - POST PROCEDURAL HAEMORRHAGE [None]
  - POSTOPERATIVE WOUND COMPLICATION [None]
  - PROCEDURAL PAIN [None]
